FAERS Safety Report 21463377 (Version 1)
Quarter: 2022Q4

REPORT INFORMATION
  Report Type: Report from Study
  Country: US (occurrence: US)
  Receive Date: 20221017
  Receipt Date: 20221017
  Transmission Date: 20230112
  Serious: No
  Sender: FDA-Public Use
  Company Number: US-ABBVIE-22K-163-4536698-00

PATIENT
  Sex: Female

DRUGS (1)
  1. HUMIRA [Suspect]
     Active Substance: ADALIMUMAB
     Indication: Psoriatic arthropathy
     Dosage: CITRATE FREE
     Route: 058
     Dates: start: 20220401

REACTIONS (15)
  - Blood glucose decreased [Not Recovered/Not Resolved]
  - Fatigue [Not Recovered/Not Resolved]
  - Peripheral swelling [Unknown]
  - Skin ulcer [Not Recovered/Not Resolved]
  - Sneezing [Not Recovered/Not Resolved]
  - Hypertonic bladder [Not Recovered/Not Resolved]
  - Injection site erythema [Recovered/Resolved with Sequelae]
  - Ocular hyperaemia [Not Recovered/Not Resolved]
  - Injection site swelling [Recovered/Resolved with Sequelae]
  - Eye irritation [Not Recovered/Not Resolved]
  - Dry eye [Not Recovered/Not Resolved]
  - Rubber sensitivity [Unknown]
  - Hyperhidrosis [Unknown]
  - Feeling hot [Unknown]
  - Presyncope [Unknown]

NARRATIVE: CASE EVENT DATE: 20220101
